FAERS Safety Report 15882767 (Version 1)
Quarter: 2019Q1

REPORT INFORMATION
  Report Type: Spontaneous
  Country: CA (occurrence: CA)
  Receive Date: 20190129
  Receipt Date: 20190129
  Transmission Date: 20190417
  Serious: Yes (Other)
  Sender: FDA-Public Use
  Company Number: CA-TEVA-2019-CA-1005458

PATIENT
  Age: 65 Year
  Sex: Female

DRUGS (1)
  1. TEVA-OMEPRAZOLE [Suspect]
     Active Substance: OMEPRAZOLE
     Indication: PEPTIC ULCER
     Dosage: 40 MILLIGRAM DAILY;

REACTIONS (2)
  - Product substitution issue [Unknown]
  - Melaena [Unknown]
